FAERS Safety Report 8756332 (Version 1)
Quarter: 2012Q4

REPORT INFORMATION
  Report Type: Report from Study
  Country: CA (occurrence: CA)
  Receive Date: 20120828
  Receipt Date: 20120828
  Transmission Date: 20130627
  Serious: Yes (Other)
  Sender: FDA-Public Use
  Company Number: CA-JNJFOC-20120810517

PATIENT
  Sex: Female

DRUGS (8)
  1. REMICADE [Suspect]
     Indication: CROHN^S DISEASE
     Dosage: 30th infusion
     Route: 042
     Dates: start: 20120821
  2. REMICADE [Suspect]
     Indication: CROHN^S DISEASE
     Route: 042
     Dates: start: 20120626
  3. REMICADE [Suspect]
     Indication: CROHN^S DISEASE
     Route: 042
     Dates: start: 2008
  4. BUDESONIDE [Concomitant]
     Indication: CROHN^S DISEASE
     Route: 048
  5. ACTONEL [Concomitant]
     Indication: OSTEOPOROSIS
     Route: 065
  6. POTASSIUM [Concomitant]
     Indication: MEDICAL DIET
     Route: 065
  7. VITAMIN D [Concomitant]
     Route: 065
  8. TECTA [Concomitant]
     Route: 065

REACTIONS (4)
  - Abdominal pain upper [Recovered/Resolved]
  - Chest discomfort [Recovered/Resolved]
  - Dyspnoea [Recovered/Resolved]
  - Drug level below therapeutic [Unknown]
